FAERS Safety Report 15242439 (Version 1)
Quarter: 2018Q3

REPORT INFORMATION
  Report Type: Spontaneous
  Country: US (occurrence: US)
  Receive Date: 20180806
  Receipt Date: 20180806
  Transmission Date: 20181010
  Serious: No
  Sender: FDA-Public Use
  Company Number: US-ASTRAZENECA-2018SE95731

PATIENT
  Age: 20642 Day
  Sex: Male
  Weight: 172.4 kg

DRUGS (1)
  1. BYDUREON BCISE [Suspect]
     Active Substance: EXENATIDE
     Indication: TYPE 2 DIABETES MELLITUS
     Route: 058

REACTIONS (6)
  - Pruritus [Not Recovered/Not Resolved]
  - Mass [Not Recovered/Not Resolved]
  - Lip swelling [Unknown]
  - Pain in extremity [Unknown]
  - Hypersensitivity [Unknown]
  - Injection site nodule [Unknown]

NARRATIVE: CASE EVENT DATE: 20180722
